FAERS Safety Report 4865088-2 (Version None)
Quarter: 2005Q4

REPORT INFORMATION
  Report Type: 
  Country: None (occurrence: None)
  Receive Date: 20051220
  Receipt Date: 20051220
  Transmission Date: 20060501
  Serious: Yes (Death)
  Sender: FDA-Public Use
  Company Number: None

PATIENT
  Age: 75 Year
  Sex: Male
  Weight: 63.05 kg

DRUGS (13)
  1. OXALIPLATIN [Suspect]
     Indication: METASTATIC NEOPLASM
     Dosage: 145 MG DAY 1 + 15 EVERY 28 IV DRIP
     Route: 041
     Dates: start: 20051122, end: 20051122
  2. LIPITOR [Concomitant]
  3. METHROTEXATE [Concomitant]
  4. LORTAB [Concomitant]
  5. CHLORPROMAZINE [Concomitant]
  6. PREDNISONE 50MG TAB [Concomitant]
  7. ATENOLOL [Concomitant]
  8. ZOLOFT [Concomitant]
  9. AMARYL [Concomitant]
  10. ASPIRIN [Concomitant]
  11. LASIX [Concomitant]
  12. IRON [Concomitant]
  13. AMITRIPTYLINE HCL [Concomitant]

REACTIONS (2)
  - MALIGNANT NEOPLASM PROGRESSION [None]
  - METASTATIC NEOPLASM [None]
